FAERS Safety Report 7119231-5 (Version None)
Quarter: 2010Q4

REPORT INFORMATION
  Report Type: 
  Country: None (occurrence: None)
  Receive Date: 20101123
  Receipt Date: 20101116
  Transmission Date: 20110411
  Serious: Yes (Death, Hospitalization, Other)
  Sender: FDA-Public Use
  Company Number: DE-BAYER-201047641GPV

PATIENT
  Sex: Female
  Weight: 54 kg

DRUGS (14)
  1. AVELOX [Suspect]
     Route: 065
  2. RASILEZ [Suspect]
     Indication: HYPERTENSION
     Dosage: TOTAL DAILY DOSE: 300 MG
     Route: 048
     Dates: start: 20090403
  3. CYNT [Suspect]
     Indication: HYPERTENSION
     Route: 048
  4. ACE INHIBITORS [Concomitant]
  5. CARVEDILOL [Concomitant]
     Dates: start: 20080820
  6. CALCIUM CHANNEL BLOCKERS [Concomitant]
  7. DIURETICS [Concomitant]
  8. ALPHA-ADRENOCEPTOR BLOCKING AGENTS [Concomitant]
  9. PENTAERYTHRITOL TETRANITRATE [Concomitant]
     Dates: start: 20080820
  10. HALOPERIDOL [Concomitant]
     Dates: start: 20080820
  11. AMITRIPTYLINE HCL [Concomitant]
     Dates: start: 20080820
  12. NOVAMINSULFON [Concomitant]
     Dates: start: 20080820
  13. ACC 200 [Concomitant]
     Dates: start: 20080820
  14. STATINE [Concomitant]

REACTIONS (8)
  - BLOOD CREATININE INCREASED [None]
  - BLOOD PRESSURE INCREASED [None]
  - CONTRAINDICATION TO MEDICAL TREATMENT [None]
  - DEMENTIA [None]
  - HYPERTENSIVE CRISIS [None]
  - PNEUMONIA ASPIRATION [None]
  - PSYCHOTIC DISORDER [None]
  - TACHYCARDIA [None]
